FAERS Safety Report 13550932 (Version 3)
Quarter: 2017Q4

REPORT INFORMATION
  Report Type: Spontaneous
  Country: US (occurrence: US)
  Receive Date: 20170516
  Receipt Date: 20171003
  Transmission Date: 20180320
  Serious: Yes (Other)
  Sender: FDA-Public Use
  Company Number: US-PFIZER INC-2017211043

PATIENT
  Age: 40 Year
  Sex: Female
  Weight: 89.36 kg

DRUGS (11)
  1. DEXILANT [Concomitant]
     Active Substance: DEXLANSOPRAZOLE
     Indication: GASTROOESOPHAGEAL REFLUX DISEASE
     Dosage: 60 MG, 1X/DAY
     Dates: start: 2014
  2. VITAMIN D3 [Concomitant]
     Active Substance: CHOLECALCIFEROL
     Indication: VITAMIN D DEFICIENCY
     Dosage: 800 MG, DAILY
     Dates: start: 2011
  3. SEROQUEL [Concomitant]
     Active Substance: QUETIAPINE FUMARATE
     Indication: BIPOLAR DISORDER
     Dosage: 100 MG, 1X/DAY
     Dates: start: 2015
  4. LIDOCAINE. [Concomitant]
     Active Substance: LIDOCAINE
     Dosage: PATCH 5% PATCH APPLIED TO HIP EVERY 12 HOURS
  5. LYRICA [Suspect]
     Active Substance: PREGABALIN
     Dosage: 150 MG, 3X/DAY
     Dates: start: 2015, end: 201701
  6. LAMICTAL [Concomitant]
     Active Substance: LAMOTRIGINE
     Dosage: 200 MG, 1X/DAY, (AT NIGHT)
     Dates: end: 201706
  7. FOLIC ACID. [Concomitant]
     Active Substance: FOLIC ACID
     Indication: GASTRIC BYPASS
     Dosage: 1 MG, 1X/DAY
     Dates: start: 2011
  8. LYRICA [Suspect]
     Active Substance: PREGABALIN
     Indication: FIBROMYALGIA
     Dosage: 150 MG, 3X/DAY
  9. CALCIUM [Concomitant]
     Active Substance: CALCIUM
     Indication: CALCIUM DEFICIENCY
     Dosage: 1200 MG, UNK
     Dates: start: 2011
  10. IRON [Concomitant]
     Active Substance: IRON
     Indication: ANAEMIA
     Dosage: 325 MG, DAILY
     Dates: start: 2011
  11. BUTALBITAL/ASA/CAFFEINE [Concomitant]
     Indication: MIGRAINE
     Dosage: [ACETYLSALICYLIC ACID 50]/ [BUTALBITAL 325]/[CAFFEINE 40] AS NEEDED
     Dates: start: 2017

REACTIONS (4)
  - Off label use [Unknown]
  - Fall [Recovered/Resolved]
  - Bedridden [Recovered/Resolved]
  - Wrist fracture [Recovered/Resolved]

NARRATIVE: CASE EVENT DATE: 2009
